FAERS Safety Report 22616254 (Version 2)
Quarter: 2023Q2

REPORT INFORMATION
  Report Type: Spontaneous
  Country: BR (occurrence: BR)
  Receive Date: 20230619
  Receipt Date: 20230627
  Transmission Date: 20230722
  Serious: Yes (Hospitalization, Other)
  Sender: FDA-Public Use
  Company Number: BR-TAKEDA-2023TUS058854

PATIENT
  Sex: Male
  Weight: 56 kg

DRUGS (1)
  1. AGRYLIN [Suspect]
     Active Substance: ANAGRELIDE HYDROCHLORIDE
     Indication: Neoplasm malignant
     Dosage: UNK UNK, BID
     Route: 048

REACTIONS (4)
  - Neoplasm malignant [Unknown]
  - Malaise [Unknown]
  - Asthenia [Unknown]
  - Product use issue [Unknown]
